FAERS Safety Report 16383699 (Version 2)
Quarter: 2021Q4

REPORT INFORMATION
  Report Type: Spontaneous
  Country: US (occurrence: US)
  Receive Date: 20190603
  Receipt Date: 20211116
  Transmission Date: 20220303
  Serious: No
  Sender: FDA-Public Use
  Company Number: US-SA-2019SA146043

PATIENT
  Age: 64 Year
  Sex: Male

DRUGS (2)
  1. LANTUS SOLOSTAR [Suspect]
     Active Substance: INSULIN GLARGINE
     Indication: Type 2 diabetes mellitus
     Dosage: 44 UNIT IN MORNING BEFORE EATING AND 40 UNITS AT NIGHT BEFORE BED TIME
     Route: 065
  2. LANTUS SOLOSTAR [Suspect]
     Active Substance: INSULIN GLARGINE
     Dosage: 44 AM 28 PM, Q12H
     Route: 065

REACTIONS (3)
  - Inappropriate schedule of product administration [Unknown]
  - Product prescribing issue [Unknown]
  - Product storage error [Unknown]
